FAERS Safety Report 6309630-3 (Version None)
Quarter: 2009Q3

REPORT INFORMATION
  Report Type: 
  Country: None (occurrence: None)
  Receive Date: 20090814
  Receipt Date: 20090806
  Transmission Date: 20100115
  Serious: Yes (Hospitalization)
  Sender: FDA-Public Use
  Company Number: AT-NOVOPROD-263671

PATIENT
  Sex: Male
  Weight: 20.5 kg

DRUGS (1)
  1. NORDITROPIN [Suspect]
     Indication: SMALL FOR DATES BABY
     Dosage: .03 MG/KG, QD
     Route: 058
     Dates: start: 20050802, end: 20070502

REACTIONS (1)
  - OSTEOCHONDROSIS [None]
